FAERS Safety Report 22723536 (Version 2)
Quarter: 2024Q3

REPORT INFORMATION
  Report Type: Spontaneous
  Country: US (occurrence: US)
  Receive Date: 20230719
  Receipt Date: 20240925
  Transmission Date: 20241017
  Serious: Yes (Other)
  Sender: NOVARTIS
  Company Number: US-002147023-NVSC2023US157353

PATIENT
  Sex: Female

DRUGS (1)
  1. DEFEROXAMINE MESYLATE [Suspect]
     Active Substance: DEFEROXAMINE MESYLATE
     Indication: Product used for unknown indication
     Dosage: UNK
     Route: 065

REACTIONS (9)
  - Haemorrhage [Unknown]
  - Bowel movement irregularity [Unknown]
  - Musculoskeletal chest pain [Unknown]
  - Joint noise [Unknown]
  - Chest discomfort [Unknown]
  - Urine iron [Unknown]
  - Pruritus [Unknown]
  - Pain [Unknown]
  - Blood iron increased [Unknown]
